FAERS Safety Report 17331891 (Version 2)
Quarter: 2020Q1

REPORT INFORMATION
  Report Type: Spontaneous
  Country: HU (occurrence: HU)
  Receive Date: 20200128
  Receipt Date: 20200303
  Transmission Date: 20200409
  Serious: Yes (Other)
  Sender: FDA-Public Use
  Company Number: HU-UCBSA-2020002494

PATIENT
  Age: 12 Year
  Sex: Female

DRUGS (3)
  1. BRIVARACETAM [Suspect]
     Active Substance: BRIVARACETAM
     Indication: PARTIAL SEIZURES
     Dosage: 2.9 MILLIGRAM/KILOGRAM/DAY
     Dates: start: 20181111
  2. SULTHIAME [Concomitant]
     Active Substance: SULTHIAME
     Indication: PARTIAL SEIZURES
     Dosage: UNKNOWN DOSE
     Dates: end: 20181111
  3. BRIVARACETAM [Suspect]
     Active Substance: BRIVARACETAM
     Indication: OFF LABEL USE

REACTIONS (2)
  - Seizure [Recovered/Resolved]
  - Off label use [Unknown]

NARRATIVE: CASE EVENT DATE: 20181111
